FAERS Safety Report 7536079-8 (Version None)
Quarter: 2011Q2

REPORT INFORMATION
  Report Type: 
  Country: None (occurrence: None)
  Receive Date: 20110607
  Receipt Date: 20110607
  Transmission Date: 20111010
  Serious: No
  Sender: FDA-Public Use
  Company Number: None

PATIENT
  Sex: Female
  Weight: 58.514 kg

DRUGS (1)
  1. FORTEO [Suspect]
     Indication: OSTEOPOROSIS
     Dosage: 20MCG DAILY SUB Q INJECTION
     Route: 058
     Dates: start: 20110324, end: 20110504

REACTIONS (3)
  - NAUSEA [None]
  - INJECTION SITE ERYTHEMA [None]
  - HYPERSENSITIVITY [None]
